FAERS Safety Report 6175480-4 (Version None)
Quarter: 2009Q2

REPORT INFORMATION
  Report Type: 
  Country: None (occurrence: None)
  Receive Date: 20090430
  Receipt Date: 20090416
  Transmission Date: 20091009
  Serious: Yes (Hospitalization)
  Sender: FDA-Public Use
  Company Number: 8044779

PATIENT
  Age: 40 Year
  Sex: Female

DRUGS (3)
  1. KEPPRA [Suspect]
     Dosage: 500 MG 2/D
     Dates: start: 20050418, end: 20050503
  2. RISPERDAL [Concomitant]
  3. DIAZEPAM [Concomitant]

REACTIONS (4)
  - FEELING COLD [None]
  - HEADACHE [None]
  - PHOTOPHOBIA [None]
  - TRANSIENT ISCHAEMIC ATTACK [None]
